FAERS Safety Report 5284813-2 (Version None)
Quarter: 2007Q2

REPORT INFORMATION
  Report Type: 
  Country: None (occurrence: None)
  Receive Date: 20070403
  Receipt Date: 20070328
  Transmission Date: 20071010
  Serious: Yes (Other)
  Sender: FDA-Public Use
  Company Number: DE-BRISTOL-MYERS SQUIBB COMPANY-13730213

PATIENT

DRUGS (4)
  1. PACLITAXEL [Suspect]
     Indication: NEOPLASM MALIGNANT
     Dosage: 1 CYCLE = 6 WEEKS DOSING; MAXIMUM 2 CYCLES
     Route: 042
  2. DEXAMETHASONE [Concomitant]
     Indication: PREMEDICATION
     Dosage: 20 MG AT ONE TRIAL LOCATION; 8 MG AT MOST SITES
     Route: 042
  3. CLEMASTINE FUMARATE [Concomitant]
     Indication: PREMEDICATION
     Route: 042
  4. CIMETIDINE HCL [Concomitant]
     Indication: PREMEDICATION
     Route: 042

REACTIONS (37)
  - ALOPECIA [None]
  - ANAEMIA [None]
  - ANAPHYLACTIC REACTION [None]
  - ANOREXIA [None]
  - ARTHRALGIA [None]
  - CARDIAC FAILURE [None]
  - CARDIOTOXICITY [None]
  - CONSTIPATION [None]
  - DIARRHOEA [None]
  - DISEASE PROGRESSION [None]
  - DRUG INTOLERANCE [None]
  - DYSPHAGIA [None]
  - FATIGUE [None]
  - FEBRILE NEUTROPENIA [None]
  - HEADACHE [None]
  - HEARING IMPAIRED [None]
  - HYPERSENSITIVITY [None]
  - INFECTION [None]
  - LEUKOPENIA [None]
  - MYALGIA [None]
  - NAIL DISORDER [None]
  - NAUSEA [None]
  - NEURALGIA [None]
  - OEDEMA [None]
  - PALMAR-PLANTAR ERYTHRODYSAESTHESIA SYNDROME [None]
  - PERFORMANCE STATUS DECREASED [None]
  - PERIPHERAL MOTOR NEUROPATHY [None]
  - PERIPHERAL SENSORY NEUROPATHY [None]
  - PHARYNGITIS [None]
  - PRURITUS GENERALISED [None]
  - SKIN DISORDER [None]
  - STOMATITIS [None]
  - THERAPY REGIMEN CHANGED [None]
  - THROMBOCYTOPENIA [None]
  - VERTIGO [None]
  - VISUAL DISTURBANCE [None]
  - VOMITING [None]
